FAERS Safety Report 8540147-1 (Version None)
Quarter: 2012Q2

REPORT INFORMATION
  Report Type: 
  Country: None (occurrence: None)
  Receive Date: 20120412
  Receipt Date: 20091001
  Transmission Date: 20120825
  Serious: Yes (Other)
  Sender: FDA-Public Use
  Company Number: PHEH2009US11393

PATIENT
  Sex: Female

DRUGS (1)
  1. AREDIA [Suspect]

REACTIONS (11)
  - SCAR [None]
  - EMOTIONAL DISTRESS [None]
  - HYPOPHAGIA [None]
  - PHYSICAL DISABILITY [None]
  - ANHEDONIA [None]
  - INJURY [None]
  - DISCOMFORT [None]
  - OSTEONECROSIS [None]
  - PAIN [None]
  - ANXIETY [None]
  - LIFE EXPECTANCY SHORTENED [None]
